FAERS Safety Report 24914808 (Version 2)
Quarter: 2025Q1

REPORT INFORMATION
  Report Type: Spontaneous
  Country: US (occurrence: US)
  Receive Date: 20250203
  Receipt Date: 20250303
  Transmission Date: 20250409
  Serious: No
  Sender: VIIV
  Company Number: US-VIIV HEALTHCARE-US2025012672

PATIENT
  Sex: Male

DRUGS (1)
  1. CABOTEGRAVIR [Suspect]
     Active Substance: CABOTEGRAVIR
     Indication: Product used for unknown indication
     Dates: end: 20241121

REACTIONS (1)
  - No adverse event [Unknown]
